FAERS Safety Report 4286593-6 (Version None)
Quarter: 2004Q1

REPORT INFORMATION
  Report Type: 
  Country: None (occurrence: None)
  Receive Date: 20040205
  Receipt Date: 20040202
  Transmission Date: 20041129
  Serious: Yes (Hospitalization)
  Sender: FDA-Public Use
  Company Number: 000758

PATIENT
  Age: 14 Year
  Sex: Male
  Weight: 43.1 kg

DRUGS (1)
  1. DEXTROAMPHETAMINE SULFATE [Suspect]
     Indication: ATTENTION DEFICIT/HYPERACTIVITY DISORDER
     Dosage: 15.00 MG, QD, ORAL
     Route: 048
     Dates: start: 20020101, end: 20031217

REACTIONS (7)
  - BIPOLAR DISORDER [None]
  - EAR INFECTION [None]
  - INFLUENZA [None]
  - IRRITABILITY [None]
  - PSYCHOMOTOR HYPERACTIVITY [None]
  - RESTLESSNESS [None]
  - SCHIZOPHRENIA [None]
